FAERS Safety Report 7521412-3 (Version None)
Quarter: 2011Q2

REPORT INFORMATION
  Report Type: 
  Country: None (occurrence: None)
  Receive Date: 20110603
  Receipt Date: 20101223
  Transmission Date: 20111010
  Serious: Yes (Other)
  Sender: FDA-Public Use
  Company Number: US-BAYER-201030346NA

PATIENT
  Age: 39 Year
  Sex: Female

DRUGS (1)
  1. BETASERON [Suspect]
     Indication: MULTIPLE SCLEROSIS
     Dosage: BETAJECT
     Route: 058
     Dates: start: 20100527

REACTIONS (14)
  - FACIAL PARESIS [None]
  - FATIGUE [None]
  - VIITH NERVE PARALYSIS [None]
  - CONFUSIONAL STATE [None]
  - BONE PAIN [None]
  - PARAESTHESIA [None]
  - POOR QUALITY SLEEP [None]
  - MULTIPLE SCLEROSIS [None]
  - DIZZINESS [None]
  - HYPOAESTHESIA [None]
  - VISUAL IMPAIRMENT [None]
  - HYPOAESTHESIA FACIAL [None]
  - MULTIPLE SCLEROSIS RELAPSE [None]
  - GAIT DISTURBANCE [None]
